FAERS Safety Report 12514204 (Version 2)
Quarter: 2016Q3

REPORT INFORMATION
  Report Type: Spontaneous
  Country: US (occurrence: US)
  Receive Date: 20160630
  Receipt Date: 20160728
  Transmission Date: 20161109
  Serious: Yes (Death, Hospitalization)
  Sender: FDA-Public Use
  Company Number: US-JNJFOC-20160528568

PATIENT
  Age: 61 Year
  Sex: Female

DRUGS (1)
  1. XARELTO [Suspect]
     Active Substance: RIVAROXABAN
     Indication: PULMONARY EMBOLISM
     Route: 048
     Dates: start: 20140204, end: 20140808

REACTIONS (3)
  - Acute kidney injury [Recovering/Resolving]
  - Haemorrhoidal haemorrhage [Recovering/Resolving]
  - Death [Fatal]

NARRATIVE: CASE EVENT DATE: 201408
